FAERS Safety Report 7511616-8 (Version None)
Quarter: 2011Q2

REPORT INFORMATION
  Report Type: 
  Country: None (occurrence: None)
  Receive Date: 20110531
  Receipt Date: 20110525
  Transmission Date: 20111010
  Serious: Yes (Hospitalization, Other)
  Sender: FDA-Public Use
  Company Number: US-PFIZER INC-2011061960

PATIENT
  Sex: Male

DRUGS (1)
  1. CHANTIX [Suspect]
     Dosage: UNK

REACTIONS (7)
  - AGEUSIA [None]
  - LOSS OF EMPLOYMENT [None]
  - SUICIDAL IDEATION [None]
  - PSYCHOTIC DISORDER [None]
  - PALPITATIONS [None]
  - ANGER [None]
  - SWOLLEN TONGUE [None]
